FAERS Safety Report 9684623 (Version 1)
Quarter: 2013Q4

REPORT INFORMATION
  Report Type: Spontaneous
  Country: US (occurrence: None)
  Receive Date: 20131108
  Receipt Date: 20131108
  Transmission Date: 20140711
  Serious: Yes (Other)
  Sender: FDA-Public Use
  Company Number: 2013AP009454

PATIENT
  Sex: Male

DRUGS (1)
  1. GLIPIZIDE [Suspect]

REACTIONS (1)
  - Knee operation [None]
